FAERS Safety Report 14040794 (Version 12)
Quarter: 2018Q1

REPORT INFORMATION
  Report Type: Report from Study
  Country: CO (occurrence: CO)
  Receive Date: 20171004
  Receipt Date: 20180305
  Transmission Date: 20180508
  Serious: Yes (Life-Threatening, Hospitalization, Other)
  Sender: FDA-Public Use
  Company Number: PHHY2017CO141605

PATIENT
  Age: 75 Year
  Sex: Male
  Weight: 64 kg

DRUGS (7)
  1. SEROLUX [Suspect]
     Active Substance: SERTRALINE HYDROCHLORIDE
     Indication: PRODUCT USED FOR UNKNOWN INDICATION
     Route: 065
  2. CORYOL [Suspect]
     Active Substance: CARVEDILOL
     Indication: PRODUCT USED FOR UNKNOWN INDICATION
     Route: 065
  3. ENTRESTO [Suspect]
     Active Substance: SACUBITRIL\VALSARTAN
     Indication: CARDIAC FAILURE
     Dosage: 50 MG, Q12H
     Route: 048
     Dates: start: 20170915
  4. SPIRONOLACTONE. [Concomitant]
     Active Substance: SPIRONOLACTONE
     Indication: PRODUCT USED FOR UNKNOWN INDICATION
     Route: 065
  5. ATORVASTATIN [Suspect]
     Active Substance: ATORVASTATIN
     Indication: PRODUCT USED FOR UNKNOWN INDICATION
     Route: 065
  6. ENOXAPARIN [Concomitant]
     Active Substance: ENOXAPARIN
     Indication: PRODUCT USED FOR UNKNOWN INDICATION
     Route: 065
  7. INSULIN GLARGINE [Concomitant]
     Active Substance: INSULIN GLARGINE
     Indication: PRODUCT USED FOR UNKNOWN INDICATION
     Route: 065

REACTIONS (22)
  - Depression [Unknown]
  - Insomnia [Unknown]
  - Incision site complication [Unknown]
  - Post procedural complication [Unknown]
  - Wound complication [Unknown]
  - Suture rupture [Unknown]
  - Klebsiella infection [Unknown]
  - Weight decreased [Unknown]
  - Feeling of despair [Unknown]
  - Abdominal distension [Unknown]
  - Feeling abnormal [Unknown]
  - Strangulated hernia [Unknown]
  - Swelling [Recovered/Resolved]
  - Eye swelling [Unknown]
  - Functional gastrointestinal disorder [Unknown]
  - Bacteraemia [Unknown]
  - Wound secretion [Not Recovered/Not Resolved]
  - Malaise [Recovering/Resolving]
  - Impaired healing [Unknown]
  - Abdominal pain upper [Unknown]
  - Renal disorder [Unknown]
  - Abdominal hernia [Unknown]

NARRATIVE: CASE EVENT DATE: 20170921
